FAERS Safety Report 21723163 (Version 3)
Quarter: 2023Q4

REPORT INFORMATION
  Report Type: Spontaneous
  Country: JP (occurrence: JP)
  Receive Date: 20221213
  Receipt Date: 20231207
  Transmission Date: 20240109
  Serious: Yes (Death)
  Sender: FDA-Public Use
  Company Number: JP-ABBVIE-4234608

PATIENT
  Age: 82 Year
  Sex: Female

DRUGS (4)
  1. VENCLEXTA [Suspect]
     Active Substance: VENETOCLAX
     Indication: Acute myeloid leukaemia
     Dosage: 3 COURSES
     Route: 048
  2. AZACITIDINE [Concomitant]
     Active Substance: AZACITIDINE
     Indication: Acute myeloid leukaemia
     Dosage: 5 DAYS ?- 3 COURSES
  3. FLUCONAZOLE [Concomitant]
     Active Substance: FLUCONAZOLE
     Indication: Antifungal prophylaxis
  4. PREDNISOLONE [Concomitant]
     Active Substance: PREDNISOLONE
     Indication: Product used for unknown indication

REACTIONS (1)
  - Acute myeloid leukaemia recurrent [Fatal]
